FAERS Safety Report 6848323-0 (Version None)
Quarter: 2010Q3

REPORT INFORMATION
  Report Type: 
  Country: None (occurrence: None)
  Receive Date: 20100716
  Receipt Date: 20100706
  Transmission Date: 20110219
  Serious: Yes (Hospitalization)
  Sender: FDA-Public Use
  Company Number: BE-ROCHE-714076

PATIENT
  Age: 79 Year
  Sex: Male
  Weight: 84 kg

DRUGS (4)
  1. BEVACIZUMAB [Suspect]
     Route: 042
     Dates: start: 20100623, end: 20100623
  2. IRINOTECAN HCL [Suspect]
     Route: 042
     Dates: start: 20100623, end: 20100623
  3. FLUOROURACIL [Suspect]
     Dosage: DOSE: 600 MG/3600 MG, ROUTE: IVD/IVC 48 HOURS.
     Route: 041
     Dates: start: 20100623, end: 20100624
  4. FOLINIC ACID [Suspect]
     Dosage: DRUG NAME:LEVO FOLIC ACID
     Route: 065
     Dates: start: 20100623

REACTIONS (3)
  - CAECITIS [None]
  - PYREXIA [None]
  - RENAL FAILURE ACUTE [None]
